FAERS Safety Report 6949054-9 (Version None)
Quarter: 2010Q3

REPORT INFORMATION
  Report Type: 
  Country: None (occurrence: None)
  Receive Date: 20100828
  Receipt Date: 20091209
  Transmission Date: 20110219
  Serious: No
  Sender: FDA-Public Use
  Company Number: US-ABBOTT-09P-163-0613259-00

PATIENT
  Sex: Female
  Weight: 78.088 kg

DRUGS (6)
  1. NIASPAN [Suspect]
     Indication: HIGH DENSITY LIPOPROTEIN DECREASED
     Dosage: AT BED TIME
     Dates: start: 20091001
  2. GARLIC [Concomitant]
     Indication: PRODUCT USED FOR UNKNOWN INDICATION
  3. HAWTHORNE BERRIES [Concomitant]
     Indication: PRODUCT USED FOR UNKNOWN INDICATION
  4. REVESTEROL [Concomitant]
     Indication: PRODUCT USED FOR UNKNOWN INDICATION
  5. CANE PEPPER PILLS OR CANE PEPPER DRINK [Concomitant]
     Indication: PRODUCT USED FOR UNKNOWN INDICATION
  6. ALFALFA [Concomitant]
     Indication: PRODUCT USED FOR UNKNOWN INDICATION

REACTIONS (1)
  - FLUSHING [None]
